FAERS Safety Report 19876976 (Version 1)
Quarter: 2021Q3

REPORT INFORMATION
  Report Type: Spontaneous
  Country: KR (occurrence: KR)
  Receive Date: 20210924
  Receipt Date: 20210924
  Transmission Date: 20211014
  Serious: No
  Sender: FDA-Public Use
  Company Number: KR-LUPIN PHARMACEUTICALS INC.-2021-17894

PATIENT
  Age: 49 Year
  Sex: Male
  Weight: 83 kg

DRUGS (6)
  1. HYDROXYCHLOROQUINE [Suspect]
     Active Substance: HYDROXYCHLOROQUINE
     Indication: COVID-19 PNEUMONIA
     Dosage: UNK
     Route: 065
  2. LOSARTAN. [Suspect]
     Active Substance: LOSARTAN
     Dosage: 100 MILLIGRAM, QD
     Route: 065
  3. PIPERACILLIN/TAZOBACTAM [Concomitant]
     Active Substance: PIPERACILLIN SODIUM\TAZOBACTAM SODIUM
     Indication: ANTIBIOTIC THERAPY
     Dosage: UNK
     Route: 065
  4. LOPINAVIR/RITONAVIR [Suspect]
     Active Substance: LOPINAVIR\RITONAVIR
     Indication: COVID-19 PNEUMONIA
     Dosage: UNK
     Route: 065
  5. LEVOFLOXACIN. [Concomitant]
     Active Substance: LEVOFLOXACIN
     Indication: ANTIBIOTIC THERAPY
     Dosage: UNK
     Route: 065
  6. LOSARTAN. [Suspect]
     Active Substance: LOSARTAN
     Indication: COVID-19 PNEUMONIA
     Dosage: 50 MILLIGRAM, QD
     Route: 065

REACTIONS (1)
  - Off label use [Unknown]
